FAERS Safety Report 7389849 (Version 3)
Quarter: 2012Q4

REPORT INFORMATION
  Report Type: Report from Study
  Country: US (occurrence: US)
  Receive Date: 20100517
  Receipt Date: 20121214
  Transmission Date: 20130627
  Serious: Yes (Hospitalization, Other)
  Sender: FDA-Public Use
  Company Number: US-ROCHE-699329

PATIENT
  Age: 71 Year
  Sex: Female
  Weight: 77.1 kg

DRUGS (5)
  1. CAPECITABINE [Suspect]
     Indication: BREAST CANCER METASTATIC
     Dosage: FREQUENCY: 2000 MG (4 TABS) IN MORNING AND 1500 MG (3 TABS) IN EVENING
     Route: 048
     Dates: start: 20100222, end: 20100329
  2. CAPECITABINE [Suspect]
     Dosage: FREQUENCY: 2000 MG (4 TABS) IN MORNING AND 1500 MG (3 TABS) IN EVENING
     Route: 048
     Dates: start: 20100701, end: 20100714
  3. BEVACIZUMAB [Suspect]
     Indication: BREAST CANCER STAGE IV
     Route: 042
  4. COUMADIN [Concomitant]
     Indication: DEEP VEIN THROMBOSIS
     Dosage: DOSE: 1.25 AND 2.5 ALTERNATE
     Route: 048
  5. LOVASTATIN [Concomitant]
     Indication: BLOOD CHOLESTEROL
     Route: 048

REACTIONS (13)
  - Urinary tract infection [Not Recovered/Not Resolved]
  - Hydronephrosis [Unknown]
  - Pyelonephritis [Unknown]
  - Flank pain [Recovered/Resolved]
  - Haematuria [Recovered/Resolved]
  - Palmar-plantar erythrodysaesthesia syndrome [Unknown]
  - Pain in extremity [Unknown]
  - Dry skin [Unknown]
  - Skin fissures [Unknown]
  - Pain in extremity [Unknown]
  - Dry skin [Unknown]
  - Skin fissures [Unknown]
  - Lymphoedema [Unknown]
